FAERS Safety Report 5009589-5 (Version None)
Quarter: 2006Q2

REPORT INFORMATION
  Report Type: 
  Country: None (occurrence: None)
  Receive Date: 20060522
  Receipt Date: 20060510
  Transmission Date: 20061013
  Serious: Yes (Other)
  Sender: FDA-Public Use
  Company Number: 224894

PATIENT
  Age: 9 Year
  Sex: Female
  Weight: 28.1 kg

DRUGS (21)
  1. NUTROPIN AQ [Suspect]
     Indication: HYPOPITUITARISM
     Dosage: 1.1 ML, QD,
     Dates: start: 19970701
  2. KLONOPIN [Concomitant]
  3. ZONEGRAN [Concomitant]
  4. LAMICTAL [Concomitant]
  5. KEPPRA [Concomitant]
  6. VALIUM [Concomitant]
  7. CORTEF [Concomitant]
  8. SYNTHROID [Concomitant]
  9. DDAVP (DESMOPRESSIN ACETATE) [Concomitant]
  10. LUPRON [Concomitant]
  11. ULTRACET (ACETAMINOPHEN, TRAMADOL HYDROCHLORIDE) [Concomitant]
  12. ZANTAC [Concomitant]
  13. CHILDREN'S MULTIVITAMINS (MULTIVITAMINS NOS) [Concomitant]
  14. CALCIUM WITH MINERALS (CALCIUM NOS, MINERALS NOS) [Concomitant]
  15. PROMOD (AMINO ACIDS) [Concomitant]
  16. IRON (IRON NOS) [Concomitant]
  17. SALT (SODIUM CHLORIDE) [Concomitant]
  18. MIRALAX [Concomitant]
  19. PEDIASURE (ENTERAL ALIMENTATION) [Concomitant]
  20. ALBUTEROL (ALBUTEROL/ALBUTEROL SULFATE) [Concomitant]
  21. BACTRIM [Concomitant]

REACTIONS (1)
  - CONVULSION [None]
